FAERS Safety Report 8476489-8 (Version None)
Quarter: 2012Q2

REPORT INFORMATION
  Report Type: 
  Country: None (occurrence: None)
  Receive Date: 20120628
  Receipt Date: 20120618
  Transmission Date: 20120825
  Serious: Yes (Hospitalization)
  Sender: FDA-Public Use
  Company Number: US-BAYER-2012-060988

PATIENT
  Age: 62 Year
  Sex: Female

DRUGS (14)
  1. PREGABALIN [Interacting]
     Indication: FIBROMYALGIA
     Dosage: 50 MG, ONCE
     Route: 048
     Dates: start: 20120428, end: 20120428
  2. CLARINEX [Concomitant]
  3. MOMETASONE FUROATE [Concomitant]
  4. ASPIRIN [Suspect]
     Dosage: UNK
     Dates: start: 20120428, end: 20120428
  5. PREGABALIN [Interacting]
     Indication: NEURALGIA
  6. ACETAMINOPHEN [Concomitant]
  7. LORTAB [Concomitant]
  8. PRILOSEC [Concomitant]
  9. RESTASIS [Concomitant]
  10. ALBUTEROL [Concomitant]
  11. ZANTAC [Concomitant]
  12. TOPROL-XL [Concomitant]
  13. DELTASONE [Concomitant]
  14. FISH OIL [Concomitant]

REACTIONS (4)
  - ERYTHEMA [None]
  - HYPERSENSITIVITY [None]
  - SWELLING FACE [None]
  - LOCALISED OEDEMA [None]
